FAERS Safety Report 15793746 (Version 3)
Quarter: 2019Q1

REPORT INFORMATION
  Report Type: Spontaneous
  Country: LV (occurrence: LV)
  Receive Date: 20190107
  Receipt Date: 20190301
  Transmission Date: 20190417
  Serious: Yes (Death)
  Sender: FDA-Public Use
  Company Number: LV-JNJFOC-20190104449

PATIENT
  Age: 38 Year
  Sex: Male
  Weight: 60 kg

DRUGS (9)
  1. STELARA [Suspect]
     Active Substance: USTEKINUMAB
     Indication: CROHN^S DISEASE
     Dosage: STELARA 130 MG INITIAL DOSE
     Route: 058
     Dates: start: 20180708
  2. MOTILIUM [Concomitant]
     Active Substance: DOMPERIDONE
     Route: 065
  3. XARELTO [Concomitant]
     Active Substance: RIVAROXABAN
     Indication: THROMBOSIS PROPHYLAXIS
     Route: 065
     Dates: start: 201809
  4. MEDROL [Concomitant]
     Active Substance: METHYLPREDNISOLONE
     Route: 065
  5. DROTAVERINE [Concomitant]
     Active Substance: DROTAVERINE
     Route: 065
  6. STELARA [Suspect]
     Active Substance: USTEKINUMAB
     Indication: CROHN^S DISEASE
     Dosage: STELARA 90 MG
     Route: 058
     Dates: start: 20180817
  7. FRAGMIN [Concomitant]
     Active Substance: DALTEPARIN SODIUM
     Route: 065
  8. CLEXANE [Concomitant]
     Active Substance: ENOXAPARIN SODIUM
     Route: 065
  9. KREON [Concomitant]
     Active Substance: PANCRELIPASE
     Route: 065

REACTIONS (8)
  - Pulmonary infarction [Unknown]
  - Dyspnoea [Unknown]
  - Pulmonary embolism [Unknown]
  - Pneumonia [Unknown]
  - Pain in extremity [Unknown]
  - Crohn^s disease [Fatal]
  - Cough [Unknown]
  - Oedema peripheral [Unknown]

NARRATIVE: CASE EVENT DATE: 20181123
